FAERS Safety Report 21349093 (Version 2)
Quarter: 2022Q4

REPORT INFORMATION
  Report Type: Spontaneous
  Country: EG (occurrence: EG)
  Receive Date: 20220919
  Receipt Date: 20221102
  Transmission Date: 20230112
  Serious: Yes (Death, Hospitalization)
  Sender: FDA-Public Use
  Company Number: EG-PFIZER INC-PV202200065498

PATIENT
  Age: 91 Year
  Sex: Female

DRUGS (3)
  1. IBRANCE [Suspect]
     Active Substance: PALBOCICLIB
     Indication: Breast cancer female
     Dosage: ONE TABLET FROM 3 WEEKS ON AND 1 WEEK OFF
     Route: 048
     Dates: start: 20210803, end: 202209
  2. FEMARA [Concomitant]
     Active Substance: LETROZOLE
     Indication: Breast cancer female
     Dosage: 2.5 MG
     Route: 048
  3. OSTEOCARE CALCIUM MAGNESIUM VITAMIN D3 [Concomitant]
     Dosage: UNK

REACTIONS (2)
  - Death [Fatal]
  - Full blood count abnormal [Unknown]
